FAERS Safety Report 7318966-9 (Version None)
Quarter: 2011Q1

REPORT INFORMATION
  Report Type: 
  Country: None (occurrence: None)
  Receive Date: 20110228
  Receipt Date: 20110214
  Transmission Date: 20110831
  Serious: Yes (Hospitalization, Other)
  Sender: FDA-Public Use
  Company Number: CA-ELI_LILLY_AND_COMPANY-CA201102003498

PATIENT
  Sex: Female
  Weight: 84.354 kg

DRUGS (13)
  1. ZYPREXA [Suspect]
     Dosage: 10 MG, EACH EVENING
     Route: 048
  2. LOXAPINE [Concomitant]
     Dosage: 25 MG, UNK
  3. ZYPREXA [Suspect]
     Indication: SCHIZOPHRENIA
     Dosage: 5 MG, EACH EVENING
     Route: 048
     Dates: start: 19981209
  4. ZYPREXA [Suspect]
     Dosage: 25 MG, EACH EVENING
  5. ZYPREXA [Suspect]
     Dosage: 15 MG, EACH EVENING
  6. ZYPREXA ZYDIS [Suspect]
     Dosage: 5 MG, AS NEEDED
     Dates: start: 20070206
  7. COGENTIN [Concomitant]
     Dosage: 2 MG, 2/D
  8. ANAFRANIL [Concomitant]
     Dosage: 75 MG, EACH EVENING
     Route: 048
  9. VITAMIN E [Concomitant]
     Dosage: 800 IU, 2/D
  10. METFORMIN [Concomitant]
     Dosage: 1 D/F, UNK
  11. METFORMIN [Concomitant]
     Dosage: 500 MG, DAILY (1/D)
  12. ZYPREXA [Suspect]
     Dosage: 20 MG, EACH EVENING
     Route: 048
  13. ZOLOFT [Concomitant]
     Dosage: 50 MG, 2/D

REACTIONS (13)
  - ANGINA PECTORIS [None]
  - DIABETES MELLITUS [None]
  - VOMITING [None]
  - HYPOAESTHESIA [None]
  - HYPERGLYCAEMIA [None]
  - DISTURBANCE IN ATTENTION [None]
  - DIZZINESS [None]
  - CARDIAC DISORDER [None]
  - EPIGASTRIC DISCOMFORT [None]
  - NAUSEA [None]
  - BLOOD CHOLESTEROL INCREASED [None]
  - DYSAESTHESIA [None]
  - OVERDOSE [None]
